FAERS Safety Report 17516353 (Version 1)
Quarter: 2020Q1

REPORT INFORMATION
  Report Type: Spontaneous
  Country: US (occurrence: US)
  Receive Date: 20200306
  Receipt Date: 20200306
  Transmission Date: 20200409
  Serious: No
  Sender: FDA-Public Use
  Company Number: None

PATIENT
  Age: 65 Year
  Sex: Female
  Weight: 69.3 kg

DRUGS (3)
  1. METHYLPHENIDATE HYDROCHLORIDE. [Suspect]
     Active Substance: METHYLPHENIDATE HYDROCHLORIDE
     Indication: ATTENTION DEFICIT/HYPERACTIVITY DISORDER
     Dosage: ?          QUANTITY:1 TABLET(S);?
     Route: 048
     Dates: start: 20200224
  2. METJHYLPHENIDATE HCL [Concomitant]
  3. BABY ASPIRIN [Concomitant]
     Active Substance: ASPIRIN

REACTIONS (8)
  - Irritability [None]
  - Product substitution issue [None]
  - Drug ineffective [None]
  - Quality of life decreased [None]
  - Headache [None]
  - Dysgeusia [None]
  - Peripheral swelling [None]
  - Product solubility abnormal [None]

NARRATIVE: CASE EVENT DATE: 20200302
